FAERS Safety Report 8406341-5 (Version None)
Quarter: 2012Q2

REPORT INFORMATION
  Report Type: 
  Country: None (occurrence: None)
  Receive Date: 20120604
  Receipt Date: 20120531
  Transmission Date: 20120825
  Serious: Yes (Death, Hospitalization, Other)
  Sender: FDA-Public Use
  Company Number: PHHY2012NL046928

PATIENT
  Sex: Female

DRUGS (3)
  1. ZOMETA [Suspect]
     Dosage: 4 MG/100ML ONCE PER 35 DAYS
     Dates: start: 20120403
  2. ZOMETA [Suspect]
     Dosage: 4 MG/100ML ONCE PER 35 DAYS
     Dates: start: 20120508
  3. ZOMETA [Suspect]
     Indication: METASTASIS
     Dosage: 4MG/100ML ONCE PER 35 DAYS
     Dates: start: 20110809

REACTIONS (4)
  - GENERAL PHYSICAL HEALTH DETERIORATION [None]
  - URINARY TRACT INFECTION [None]
  - BLOOD COUNT ABNORMAL [None]
  - HEPATIC FAILURE [None]
